FAERS Safety Report 8381043-2 (Version None)
Quarter: 2012Q2

REPORT INFORMATION
  Report Type: 
  Country: None (occurrence: None)
  Receive Date: 20120522
  Receipt Date: 20111202
  Transmission Date: 20120825
  Serious: No
  Sender: FDA-Public Use
  Company Number: 2011-11994

PATIENT
  Sex: Female

DRUGS (2)
  1. BIRTH CONTROL [Concomitant]
  2. THERACYS [Suspect]
     Indication: PRODUCT USED FOR UNKNOWN INDICATION

REACTIONS (3)
  - ACCIDENTAL EXPOSURE [None]
  - INJURY ASSOCIATED WITH DEVICE [None]
  - OEDEMA PERIPHERAL [None]
